FAERS Safety Report 16889121 (Version 2)
Quarter: 2019Q4

REPORT INFORMATION
  Report Type: Spontaneous
  Country: US (occurrence: US)
  Receive Date: 20191007
  Receipt Date: 20191014
  Transmission Date: 20200122
  Serious: Yes (Life-Threatening, Other)
  Sender: FDA-Public Use
  Company Number: US-SA-2019SA270724

PATIENT
  Age: 57 Year
  Sex: Female

DRUGS (3)
  1. KETOROLAC [Suspect]
     Active Substance: KETOROLAC TROMETHAMINE
     Indication: ANALGESIC THERAPY
     Dosage: UNK UNK, UNK
     Route: 042
  2. HEPARIN [Suspect]
     Active Substance: HEPARIN SODIUM
     Indication: ANTICOAGULANT THERAPY
     Dosage: UNK UNK, UNK
     Route: 065
  3. ENOXAPARIN SODIUM. [Suspect]
     Active Substance: ENOXAPARIN SODIUM
     Indication: ANTICOAGULANT THERAPY
     Dosage: UNK UNK, UNK
     Route: 058

REACTIONS (7)
  - Spinal cord compression [Unknown]
  - Muscular weakness [Unknown]
  - Hypoaesthesia [Unknown]
  - Myelomalacia [Unknown]
  - Product prescribing issue [Unknown]
  - Paraplegia [Not Recovered/Not Resolved]
  - Spinal epidural haematoma [Unknown]
